FAERS Safety Report 5061747-X (Version None)
Quarter: 2006Q3

REPORT INFORMATION
  Report Type: 
  Country: None (occurrence: None)
  Receive Date: 20060720
  Receipt Date: 20060710
  Transmission Date: 20061208
  Serious: Yes (Other)
  Sender: FDA-Public Use
  Company Number: 2006086948

PATIENT
  Age: 66 Year
  Sex: Male

DRUGS (2)
  1. ZOLOFT [Suspect]
     Indication: LEUKAEMIA MONOCYTIC
     Dosage: 50 MG (1 D)
  2. LEVOCETIRIZINE (LEVOCETIRIZINE) [Concomitant]

REACTIONS (11)
  - BLISTER [None]
  - CONTUSION [None]
  - HEADACHE [None]
  - HYPOTONIA [None]
  - LEUKOPENIA [None]
  - MONOCYTOSIS [None]
  - MUSCULAR WEAKNESS [None]
  - NEUTROPENIA [None]
  - RASH [None]
  - VERTIGO [None]
  - VOMITING [None]
